FAERS Safety Report 23567220 (Version 2)
Quarter: 2024Q2

REPORT INFORMATION
  Report Type: Spontaneous
  Country: US (occurrence: US)
  Receive Date: 20240226
  Receipt Date: 20240606
  Transmission Date: 20240716
  Serious: Yes (Death, Other)
  Sender: FDA-Public Use
  Company Number: US-PFIZER INC-PV202300049282

PATIENT
  Age: 87 Year
  Sex: Male
  Weight: 78.005 kg

DRUGS (10)
  1. VYNDAMAX [Suspect]
     Active Substance: TAFAMIDIS
     Indication: Amyloidosis
     Dosage: 61 MG, 1X/DAY(ONCE IN THE MORNING)/1 CAPSULE PER DAY
     Dates: start: 20230518
  2. FUROSEMIDE [Concomitant]
     Active Substance: FUROSEMIDE
  3. METOPROLOL [Concomitant]
     Active Substance: METOPROLOL
  4. LUMIGAN [Concomitant]
     Active Substance: BIMATOPROST
  5. CLONAZEPAM [Concomitant]
     Active Substance: CLONAZEPAM
  6. ALFUZOSIN [Concomitant]
     Active Substance: ALFUZOSIN
  7. AMOXICILLIN [Concomitant]
     Active Substance: AMOXICILLIN
  8. ELIQUIS [Concomitant]
     Active Substance: APIXABAN
  9. TORSEMIDE [Concomitant]
     Active Substance: TORSEMIDE
  10. TAMSULOSIN [Concomitant]
     Active Substance: TAMSULOSIN

REACTIONS (1)
  - Cardiac failure congestive [Fatal]

NARRATIVE: CASE EVENT DATE: 20231225
